FAERS Safety Report 13242267 (Version 1)
Quarter: 2017Q1

REPORT INFORMATION
  Report Type: Spontaneous
  Country: US (occurrence: US)
  Receive Date: 20170216
  Receipt Date: 20170216
  Transmission Date: 20170428
  Serious: Yes (Other)
  Sender: FDA-Public Use
  Company Number: None

PATIENT
  Age: 18 Year
  Sex: Male
  Weight: 74.91 kg

DRUGS (2)
  1. SULFAMETHOXAZOLE/TRIMETHOPRIM DS 800-160 TAB AMNE [Suspect]
     Active Substance: SULFAMETHOXAZOLE\TRIMETHOPRIM
     Indication: STAPHYLOCOCCAL INFECTION
     Route: 048
     Dates: start: 20170118, end: 20170129
  2. MULTIVITAMIN [Concomitant]
     Active Substance: VITAMINS

REACTIONS (5)
  - Hypersensitivity [None]
  - Pyrexia [None]
  - Eye swelling [None]
  - Headache [None]
  - Swelling [None]

NARRATIVE: CASE EVENT DATE: 20170119
